FAERS Safety Report 5674187-7 (Version None)
Quarter: 2008Q1

REPORT INFORMATION
  Report Type: 
  Country: None (occurrence: None)
  Receive Date: 20080320
  Receipt Date: 20080312
  Transmission Date: 20080703
  Serious: Yes (Hospitalization)
  Sender: FDA-Public Use
  Company Number: PHHO2007DE18740

PATIENT
  Age: 29 Year
  Sex: Female
  Weight: 47 kg

DRUGS (4)
  1. CERTICAN [Suspect]
     Indication: LUNG TRANSPLANT
     Dosage: 2000 MG/DAILY
     Route: 048
     Dates: start: 20070718
  2. CERTICAN [Suspect]
     Dosage: 2000 MG/DAILY
     Route: 048
     Dates: start: 20080121
  3. ERYTHROMYCIN [Concomitant]
  4. ESIDRIX [Suspect]

REACTIONS (15)
  - ANAEMIA [None]
  - BODY TEMPERATURE INCREASED [None]
  - BRONCHOPLASTY [None]
  - BRONCHOSTENOSIS [None]
  - HYPONATRAEMIA [None]
  - LEUKOPENIA [None]
  - LOBAR PNEUMONIA [None]
  - LUNG DISORDER [None]
  - LUNG INFILTRATION [None]
  - PHOTOCOAGULATION [None]
  - PRODUCTIVE COUGH [None]
  - PROTEUS INFECTION [None]
  - PSEUDOMONAS INFECTION [None]
  - PULMONARY NECROSIS [None]
  - PURULENT DISCHARGE [None]
